FAERS Safety Report 5052081-2 (Version None)
Quarter: 2006Q3

REPORT INFORMATION
  Report Type: 
  Country: None (occurrence: None)
  Receive Date: 20060711
  Receipt Date: 20060619
  Transmission Date: 20061208
  Serious: Yes (Hospitalization)
  Sender: FDA-Public Use
  Company Number: IT200605003582

PATIENT
  Sex: Female

DRUGS (1)
  1. XIGRIS [Suspect]
     Dosage: 24 MG/KG, OTHER
     Dates: start: 20060515, end: 20060518

REACTIONS (2)
  - HAEMODIALYSIS [None]
  - THROMBOCYTOPENIA [None]
